FAERS Safety Report 19440593 (Version 2)
Quarter: 2021Q2

REPORT INFORMATION
  Report Type: Report from Study
  Country: IN (occurrence: IN)
  Receive Date: 20210621
  Receipt Date: 20210624
  Transmission Date: 20210717
  Serious: Yes (Hospitalization, Other)
  Sender: FDA-Public Use
  Company Number: IN-BRISTOL-MYERS SQUIBB COMPANY-BMS-2021-058272

PATIENT
  Age: 49 Year
  Sex: Male

DRUGS (3)
  1. NIVOLUMAB [Suspect]
     Active Substance: NIVOLUMAB
     Dosage: 270 MILLIGRAM, Q2WK
     Route: 042
     Dates: start: 20210516
  2. NIVOLUMAB [Suspect]
     Active Substance: NIVOLUMAB
     Indication: METASTATIC MALIGNANT MELANOMA
     Dosage: UNK
     Route: 065
     Dates: start: 202103
  3. NIVOLUMAB [Suspect]
     Active Substance: NIVOLUMAB
     Dosage: 270 MILLIGRAM, Q2WK
     Route: 042
     Dates: start: 20210415

REACTIONS (5)
  - Gastrointestinal haemorrhage [Unknown]
  - Gastric ulcer [Unknown]
  - COVID-19 [Unknown]
  - Haematochezia [Unknown]
  - Haemoglobin decreased [Unknown]

NARRATIVE: CASE EVENT DATE: 20210612
